FAERS Safety Report 23769948 (Version 1)
Quarter: 2024Q2

REPORT INFORMATION
  Report Type: Spontaneous
  Country: IT (occurrence: IT)
  Receive Date: 20240422
  Receipt Date: 20240422
  Transmission Date: 20240716
  Serious: Yes (Other)
  Sender: FDA-Public Use
  Company Number: IT-INDIVIOR UK LIMITED-INDV-144194-2024

PATIENT
  Age: 63 Year
  Sex: Male

DRUGS (8)
  1. BUPRENORPHINE [Suspect]
     Active Substance: BUPRENORPHINE
     Indication: Drug use disorder
     Dosage: 4 MILLIGRAM
     Route: 060
     Dates: start: 2007, end: 2010
  2. BUPRENORPHINE [Suspect]
     Active Substance: BUPRENORPHINE
     Indication: Supplementation therapy
     Dosage: 6 MILLIGRAM
     Route: 060
     Dates: start: 2010, end: 2016
  3. BUPRENORPHINE [Suspect]
     Active Substance: BUPRENORPHINE
     Dosage: 8 MILLIGRAM
     Route: 060
     Dates: start: 2016, end: 2017
  4. BUPRENORPHINE [Suspect]
     Active Substance: BUPRENORPHINE
     Dosage: 10 MILLIGRAM
     Route: 060
     Dates: start: 2017, end: 2019
  5. BUPRENORPHINE [Suspect]
     Active Substance: BUPRENORPHINE
     Dosage: 12 MILLIGRAM
     Route: 060
     Dates: start: 2019, end: 2021
  6. BUPRENORPHINE [Suspect]
     Active Substance: BUPRENORPHINE
     Dosage: 6 MILLIGRAM
     Route: 060
     Dates: start: 2021, end: 2022
  7. BUPRENORPHINE [Suspect]
     Active Substance: BUPRENORPHINE
     Dosage: 8 MILLIGRAM
     Route: 060
     Dates: start: 202209, end: 202210
  8. BUPRENORPHINE [Suspect]
     Active Substance: BUPRENORPHINE
     Dosage: 1 MILLIGRAM FOR 3 DAYS
     Route: 060
     Dates: start: 2022, end: 2022

REACTIONS (7)
  - Femur fracture [Unknown]
  - Cryoglobulinaemia [Unknown]
  - Heteroplasia [Unknown]
  - Hypoxia [Unknown]
  - Drug withdrawal syndrome [Recovered/Resolved]
  - Drug abuse [Unknown]
  - Wrong technique in product usage process [Recovered/Resolved]

NARRATIVE: CASE EVENT DATE: 20080101
